FAERS Safety Report 15735160 (Version 1)
Quarter: 2018Q4

REPORT INFORMATION
  Report Type: Spontaneous
  Country: US (occurrence: US)
  Receive Date: 20181218
  Receipt Date: 20181218
  Transmission Date: 20190205
  Serious: Yes (Other)
  Sender: FDA-Public Use
  Company Number: US-IMPAX LABORATORIES, LLC-2018-IPXL-04160

PATIENT
  Age: 22 Year
  Sex: Female

DRUGS (1)
  1. ADRENACLICK [Suspect]
     Active Substance: EPINEPHRINE
     Indication: ANAPHYLACTIC REACTION
     Dosage: 0.5 MILLIGRAM
     Route: 040

REACTIONS (5)
  - Myocardial ischaemia [Unknown]
  - Arrhythmia [Unknown]
  - Unresponsive to stimuli [Unknown]
  - Headache [Unknown]
  - Overdose [Unknown]
